FAERS Safety Report 10985963 (Version 1)
Quarter: 2015Q1

REPORT INFORMATION
  Report Type: Spontaneous
  Country: US (occurrence: None)
  Receive Date: 20150309
  Receipt Date: 20150309
  Transmission Date: 20150721
  Serious: Yes (Other)
  Sender: FDA-Public Use
  Company Number: 2014VER00244

PATIENT
  Age: 20 Year
  Sex: Female

DRUGS (1)
  1. MYORISAN [Suspect]
     Active Substance: ISOTRETINOIN
     Indication: ACNE
     Route: 048
     Dates: start: 20140621, end: 201407

REACTIONS (3)
  - Hepatitis [None]
  - Globulins increased [None]
  - Red cell distribution width increased [None]

NARRATIVE: CASE EVENT DATE: 20140717
